FAERS Safety Report 8506168-X (Version None)
Quarter: 2012Q3

REPORT INFORMATION
  Report Type: 
  Country: None (occurrence: None)
  Receive Date: 20120712
  Receipt Date: 20120702
  Transmission Date: 20120928
  Serious: No
  Sender: FDA-Public Use
  Company Number: US-009507513-1207USA000735

PATIENT

DRUGS (1)
  1. SAPHRIS [Suspect]

REACTIONS (3)
  - DRUG ADMINISTERED TO PATIENT OF INAPPROPRIATE AGE [None]
  - DRUG HYPERSENSITIVITY [None]
  - RASH [None]
